FAERS Safety Report 7762454-2 (Version None)
Quarter: 2011Q3

REPORT INFORMATION
  Report Type: 
  Country: None (occurrence: None)
  Receive Date: 20110920
  Receipt Date: 20110914
  Transmission Date: 20111222
  Serious: Yes (Death)
  Sender: FDA-Public Use
  Company Number: EG-SANOFI-AVENTIS-2011SA059824

PATIENT
  Age: 50 Year
  Sex: Male

DRUGS (1)
  1. INSULIN GLULISINE [Suspect]
     Indication: TYPE 2 DIABETES MELLITUS
     Dosage: DOSE:70 UNIT(S)
     Route: 058
     Dates: start: 20110501, end: 20110714

REACTIONS (2)
  - NEOPLASM MALIGNANT [None]
  - DEATH [None]
